FAERS Safety Report 15739220 (Version 3)
Quarter: 2019Q1

REPORT INFORMATION
  Report Type: Report from Study
  Country: GB (occurrence: GB)
  Receive Date: 20181219
  Receipt Date: 20190307
  Transmission Date: 20190417
  Serious: Yes (Other)
  Sender: FDA-Public Use
  Company Number: PHHY2018GB186847

PATIENT
  Sex: Female

DRUGS (3)
  1. THYROXINE [Concomitant]
     Active Substance: LEVOTHYROXINE
     Indication: PRODUCT USED FOR UNKNOWN INDICATION
     Dosage: 1.5 MG, UNK
     Route: 065
  2. SANDOSTATIN LAR DEPOT [Suspect]
     Active Substance: OCTREOTIDE ACETATE
     Indication: NEUROENDOCRINE TUMOUR
     Dosage: 20 MG, QMO
     Route: 030
     Dates: start: 20181114
  3. THYROXINE [Concomitant]
     Active Substance: LEVOTHYROXINE
     Dosage: 1.25 MG, UNK
     Route: 065

REACTIONS (9)
  - Decreased appetite [Unknown]
  - Blood glucose increased [Recovering/Resolving]
  - Blood albumin increased [Unknown]
  - Pyrexia [Unknown]
  - Hypoglycaemia [Unknown]
  - Sepsis [Unknown]
  - Weight decreased [Unknown]
  - Diarrhoea [Recovering/Resolving]
  - Stress [Unknown]
